FAERS Safety Report 5166461-8 (Version None)
Quarter: 2006Q4

REPORT INFORMATION
  Report Type: 
  Country: None (occurrence: None)
  Receive Date: 20061129
  Receipt Date: 20061117
  Transmission Date: 20070319
  Serious: Yes (Hospitalization, Other)
  Sender: FDA-Public Use
  Company Number: 2006103756

PATIENT
  Age: 54 Year
  Sex: Female

DRUGS (4)
  1. LIPITOR [Suspect]
     Dosage: 10 MG (10 MG, 1 IN 1 D), ORAL
     Route: 048
     Dates: start: 20030218, end: 20060821
  2. TELMISARTAN (TELMISARTAN) [Concomitant]
  3. DIPYRIDAMOLE [Concomitant]
  4. PREDNISOLONE [Concomitant]

REACTIONS (6)
  - HEPATITIS [None]
  - LIVER DISORDER [None]
  - PANCREATITIS [None]
  - PAROTID GLAND ENLARGEMENT [None]
  - PYREXIA [None]
  - SJOGREN'S SYNDROME [None]
